FAERS Safety Report 8302984 (Version 3)
Quarter: 2013Q2

REPORT INFORMATION
  Report Type: Spontaneous
  Country: US (occurrence: None)
  Receive Date: 20111007
  Receipt Date: 20120709
  Transmission Date: 20140414
  Serious: Yes (Hospitalization)
  Sender: FDA-Public Use
  Company Number: 2011HGS-002530

PATIENT
  Age: 43 Year
  Sex: Female
  Weight: 117.48 kg

DRUGS (11)
  1. BENLYSTA [Suspect]
     Indication: SYSTEMIC LUPUS ERYTHEMATOSUS
     Dosage: INTRAVENOUS DRIP
     Route: 041
     Dates: start: 20110831
  2. PLAQUENIL (HYDROXYCHLOROQUINE SULFATE) (HYDROXYCHLOROQUINE SULFATE) [Concomitant]
  3. PREDNISONE [Concomitant]
  4. COUMADIN (WARFARIN SODIUM) (WARFARIN SODIUM) [Concomitant]
  5. METHOTREXATE (METHOTREXATE) (METHOTREXATE) [Concomitant]
  6. COZAAR (LOSARTAN POTASSIUM) (LOSARTAN POTASSIUM) [Concomitant]
  7. FOLIC ACID (FOLIC ACID) (FOLIC ACID) [Concomitant]
  8. JANUVIA (SITAGLIPTIN PHOSPHATE) (SITAGLIPTIN PHOSPHATE) [Concomitant]
  9. METFORMIN (METFORMIN) (METFORMIN) [Concomitant]
  10. CRESTOR (ROSUVASTATIN CALCIUM) (ROSUVASTATIN CALCIUM) [Concomitant]
  11. COLCHICINE (COLCHICINE) (COLCHICINE) [Concomitant]

REACTIONS (12)
  - PARAESTHESIA [None]
  - LYMPHADENOPATHY [None]
  - THROAT TIGHTNESS [None]
  - LOWER RESPIRATORY TRACT INFECTION [None]
  - COUGH [None]
  - NERVOUSNESS [None]
  - DRY MOUTH [None]
  - DYSPHAGIA [None]
  - DIARRHOEA [None]
  - Pneumonia [None]
  - Pyrexia [None]
  - Pharyngeal oedema [None]
